FAERS Safety Report 23959049 (Version 2)
Quarter: 2024Q2

REPORT INFORMATION
  Report Type: Spontaneous
  Country: JP (occurrence: JP)
  Receive Date: 20240611
  Receipt Date: 20240617
  Transmission Date: 20240716
  Serious: Yes (Other)
  Sender: FDA-Public Use
  Company Number: None

PATIENT
  Age: 17 Year
  Sex: Male

DRUGS (6)
  1. IBUPROFEN [Suspect]
     Active Substance: IBUPROFEN
     Indication: Histiocytic necrotising lymphadenitis
     Dosage: UNK
     Route: 065
  2. METHYLPREDNISOLONE [Suspect]
     Active Substance: METHYLPREDNISOLONE
     Indication: Histiocytic necrotising lymphadenitis
     Dosage: UNK
     Route: 042
  3. METHYLPREDNISOLONE [Suspect]
     Active Substance: METHYLPREDNISOLONE
     Dosage: UNK
     Route: 048
  4. CYCLOSPORINE [Suspect]
     Active Substance: CYCLOSPORINE
     Indication: Histiocytic necrotising lymphadenitis
     Dosage: UNK, QD (EVERY 1 DAY)
     Route: 048
  5. CYCLOSPORINE [Suspect]
     Active Substance: CYCLOSPORINE
     Dosage: 2.5 MILLIGRAM/KILOGRAM, QD (EVERY 1 DAY)
     Route: 065
  6. CYCLOSPORINE [Suspect]
     Active Substance: CYCLOSPORINE
     Dosage: 1.3 MILLIGRAM/KILOGRAM, QD (EVERY 1 DAY)
     Route: 065

REACTIONS (3)
  - Hypothermia [Recovered/Resolved]
  - Hypotension [Recovered/Resolved]
  - Bradycardia [Recovered/Resolved]
